FAERS Safety Report 5798566-2 (Version None)
Quarter: 2008Q3

REPORT INFORMATION
  Report Type: 
  Country: None (occurrence: None)
  Receive Date: 20080701
  Receipt Date: 20080701
  Transmission Date: 20090109
  Serious: No
  Sender: FDA-Public Use
  Company Number: None

PATIENT
  Age: 51 Year
  Sex: Male

DRUGS (1)
  1. ZOLPIDEM [Suspect]
     Indication: INSOMNIA
     Dosage: 10 MG AT BEDTIME PO
     Route: 048
     Dates: start: 20080428, end: 20080428

REACTIONS (4)
  - DYSPNOEA [None]
  - PALPITATIONS [None]
  - RASH [None]
  - RASH PRURITIC [None]
